FAERS Safety Report 9128933 (Version 1)
Quarter: 2013Q1

REPORT INFORMATION
  Report Type: Report from Study
  Country: CM (occurrence: CM)
  Receive Date: 20130125
  Receipt Date: 20130125
  Transmission Date: 20140127
  Serious: Yes (Other)
  Sender: FDA-Public Use
  Company Number: CM-ABBOTT-13P-027-1037767-00

PATIENT
  Sex: Female
  Weight: 3.04 kg

DRUGS (2)
  1. ALUVIA [Suspect]
     Indication: MATERNAL EXPOSURE TIMING UNSPECIFIED
     Route: 064
  2. TRUVADA [Concomitant]
     Indication: MATERNAL EXPOSURE TIMING UNSPECIFIED
     Route: 064

REACTIONS (2)
  - Neonatal asphyxia [Unknown]
  - Foetal exposure during pregnancy [Unknown]
